FAERS Safety Report 21210025 (Version 3)
Quarter: 2022Q3

REPORT INFORMATION
  Report Type: Other
  Country: US (occurrence: None)
  Receive Date: 20220813
  Receipt Date: 20220905
  Transmission Date: 20221027
  Serious: Yes (Death, Disabling)
  Sender: FDA-Public Use
  Company Number: US-ROCHE-3159184

PATIENT
  Age: 74 Year
  Sex: Female
  Weight: 72.640 kg

DRUGS (15)
  1. ESBRIET [Suspect]
     Active Substance: PIRFENIDONE
     Indication: Idiopathic pulmonary fibrosis
     Dosage: DAY 1 THROUGH 7: 1 TABLET BY MOUTH THREE TIMES A DAY WITH MEALS DAY 8 THROUGH 14: 2  TABLETS BY MOUT
     Route: 048
  2. ESBRIET [Suspect]
     Active Substance: PIRFENIDONE
     Indication: Pulmonary fibrosis
  3. OFEV [Concomitant]
     Active Substance: NINTEDANIB
  4. ZINC ACETATE [Concomitant]
     Active Substance: ZINC ACETATE
  5. PRAVASTATIN [Concomitant]
     Active Substance: PRAVASTATIN
  6. PROTONIX [Concomitant]
     Active Substance: PANTOPRAZOLE SODIUM
  7. METFORMIN [Concomitant]
     Active Substance: METFORMIN HYDROCHLORIDE
  8. MAGNESIUM OXIDE [Concomitant]
     Active Substance: MAGNESIUM OXIDE
  9. LOSARTAN [Concomitant]
     Active Substance: LOSARTAN
  10. JANUVIA [Concomitant]
     Active Substance: SITAGLIPTIN PHOSPHATE
  11. GLIPIZIDE [Concomitant]
     Active Substance: GLIPIZIDE
  12. LASIX [Concomitant]
     Active Substance: FUROSEMIDE
  13. FLOVENT HFA [Concomitant]
     Active Substance: FLUTICASONE PROPIONATE
  14. APIXABAN [Concomitant]
     Active Substance: APIXABAN
  15. AMIODARONE [Concomitant]
     Active Substance: AMIODARONE

REACTIONS (5)
  - Depression [Not Recovered/Not Resolved]
  - Decreased appetite [Fatal]
  - Pruritus [Not Recovered/Not Resolved]
  - Death [Fatal]
  - Hypersensitivity [Unknown]

NARRATIVE: CASE EVENT DATE: 20220810
